FAERS Safety Report 13123544 (Version 3)
Quarter: 2018Q1

REPORT INFORMATION
  Report Type: Report from Study
  Country: US (occurrence: US)
  Receive Date: 20170117
  Receipt Date: 20180313
  Transmission Date: 20180508
  Serious: Yes (Hospitalization)
  Sender: FDA-Public Use
  Company Number: US-ACTELION-A-US2017-148139

PATIENT
  Age: 67 Year
  Sex: Female

DRUGS (13)
  1. GLIPIZIDE. [Concomitant]
     Active Substance: GLIPIZIDE
  2. OPSUMIT [Suspect]
     Active Substance: MACITENTAN
     Indication: PULMONARY ARTERIAL HYPERTENSION
     Dosage: 10 MG, QD
     Route: 048
     Dates: start: 20161122
  3. GABAPENTIN. [Concomitant]
     Active Substance: GABAPENTIN
  4. POTASSIUM CHLORIDE. [Concomitant]
     Active Substance: POTASSIUM CHLORIDE
  5. PRIMIDONE. [Concomitant]
     Active Substance: PRIMIDONE
  6. FUROSEMIDE. [Concomitant]
     Active Substance: FUROSEMIDE
  7. ALBUTEROL. [Concomitant]
     Active Substance: ALBUTEROL
  8. MUPIROCIN. [Concomitant]
     Active Substance: MUPIROCIN
  9. LANTUS [Concomitant]
     Active Substance: INSULIN GLARGINE
  10. PROPRANOLOL [Concomitant]
     Active Substance: PROPRANOLOL HYDROCHLORIDE
  11. HUMALOG [Concomitant]
     Active Substance: INSULIN LISPRO
  12. LEVOFLOXACIN. [Concomitant]
     Active Substance: LEVOFLOXACIN
  13. OMEPRAZOLE. [Concomitant]
     Active Substance: OMEPRAZOLE

REACTIONS (7)
  - Drug dose omission [Not Recovered/Not Resolved]
  - Spinal operation [Unknown]
  - Chest discomfort [Not Recovered/Not Resolved]
  - Vascular pain [Not Recovered/Not Resolved]
  - Pneumonia [Recovered/Resolved]
  - Dysstasia [Not Recovered/Not Resolved]
  - Fall [Not Recovered/Not Resolved]

NARRATIVE: CASE EVENT DATE: 20161230
